FAERS Safety Report 19291349 (Version 1)
Quarter: 2021Q2

REPORT INFORMATION
  Report Type: Spontaneous
  Country: FR (occurrence: FR)
  Receive Date: 20210523
  Receipt Date: 20210523
  Transmission Date: 20210717
  Serious: Yes (Hospitalization, Other)
  Sender: FDA-Public Use
  Company Number: FR-TEVA-2021-FR-1913530

PATIENT
  Age: 65 Year
  Sex: Female
  Weight: 83 kg

DRUGS (7)
  1. METHOTREXATE (METHOTREXATE SODIUM) [Suspect]
     Active Substance: METHOTREXATE SODIUM
     Indication: ACUTE LYMPHOCYTIC LEUKAEMIA
     Dosage: 1860 MG
     Route: 042
     Dates: start: 20210416, end: 20210416
  2. TASIGNA [Concomitant]
     Active Substance: NILOTINIB
  3. LEDERFOLINE [Concomitant]
     Active Substance: LEUCOVORIN CALCIUM
  4. DEPO?MEDROL [Concomitant]
     Active Substance: METHYLPREDNISOLONE ACETATE
  5. ARACYTINE [Concomitant]
     Active Substance: CYTARABINE
  6. KIDROLASE [Concomitant]
     Active Substance: ASPARAGINASE
  7. METHOTREXATE BIODIM [Suspect]
     Active Substance: METHOTREXATE
     Indication: ACUTE LYMPHOCYTIC LEUKAEMIA
     Dosage: 15 MG
     Route: 037
     Dates: start: 20210416, end: 20210416

REACTIONS (6)
  - Acute kidney injury [Not Recovered/Not Resolved]
  - Hypocalcaemia [Recovered/Resolved]
  - Depressed level of consciousness [Recovered/Resolved]
  - Drug level increased [Recovered/Resolved]
  - Vomiting [Recovered/Resolved]
  - Nausea [Recovered/Resolved]

NARRATIVE: CASE EVENT DATE: 20210410
